FAERS Safety Report 5346179-9 (Version None)
Quarter: 2007Q2

REPORT INFORMATION
  Report Type: 
  Country: None (occurrence: None)
  Receive Date: 20070605
  Receipt Date: 20070524
  Transmission Date: 20071010
  Serious: Yes (Death)
  Sender: FDA-Public Use
  Company Number: NL-JNJFOC-20070506294

PATIENT
  Age: 9 Decade
  Sex: Female

DRUGS (1)
  1. TRAMADOL HCL [Suspect]
     Indication: POST-TRAUMATIC PAIN
     Route: 065

REACTIONS (1)
  - ILEUS [None]
